FAERS Safety Report 8406522-0 (Version None)
Quarter: 2012Q2

REPORT INFORMATION
  Report Type: 
  Country: None (occurrence: None)
  Receive Date: 20120604
  Receipt Date: 20110707
  Transmission Date: 20120825
  Serious: No
  Sender: FDA-Public Use
  Company Number: US-COVIDIEN/TYCO HEALTHCARE/MALLINCKRODT-T201101374

PATIENT
  Sex: Male

DRUGS (4)
  1. METFORMIN HCL [Concomitant]
  2. HYDROCHLOROTHIAZIDE [Concomitant]
  3. ACETAMINOPHEN AND CODEINE PHOSPHATE [Suspect]
     Dosage: UNK
  4. PRAVASTATIN [Concomitant]
     Dosage: 80 MG, UNK

REACTIONS (1)
  - HEADACHE [None]
